FAERS Safety Report 18558292 (Version 1)
Quarter: 2020Q4

REPORT INFORMATION
  Report Type: Report from Study
  Country: US (occurrence: US)
  Receive Date: 20201130
  Receipt Date: 20201130
  Transmission Date: 20210114
  Serious: No
  Sender: FDA-Public Use
  Company Number: NVSC2020US308876

PATIENT
  Age: 54 Year
  Sex: Female

DRUGS (2)
  1. KESIMPTA [Suspect]
     Active Substance: OFATUMUMAB
     Indication: MULTIPLE SCLEROSIS
     Route: 058
     Dates: start: 20201018
  2. KESIMPTA [Suspect]
     Active Substance: OFATUMUMAB
     Dosage: UNK
     Route: 065
     Dates: start: 20201115

REACTIONS (5)
  - Needle fatigue [Unknown]
  - Feeling abnormal [Recovering/Resolving]
  - Feeling hot [Recovering/Resolving]
  - Wrong technique in product usage process [Unknown]
  - Packaging design issue [Unknown]

NARRATIVE: CASE EVENT DATE: 20201018
